FAERS Safety Report 12682095 (Version 1)
Quarter: 2016Q3

REPORT INFORMATION
  Report Type: Spontaneous
  Country: US (occurrence: US)
  Receive Date: 20160824
  Receipt Date: 20160824
  Transmission Date: 20161109
  Serious: No
  Sender: FDA-Public Use
  Company Number: US-ELI_LILLY_AND_COMPANY-US201608010005

PATIENT
  Sex: Female

DRUGS (2)
  1. HUMULIN N [Suspect]
     Active Substance: INSULIN HUMAN
     Indication: TYPE 2 DIABETES MELLITUS
     Dosage: 55 U, EACH EVENING
     Route: 065
     Dates: start: 2000
  2. HUMULIN N [Suspect]
     Active Substance: INSULIN HUMAN
     Dosage: 55 U, EACH EVENING
     Route: 065

REACTIONS (2)
  - Blood glucose abnormal [Unknown]
  - Incorrect product storage [Unknown]
